FAERS Safety Report 6922528-2 (Version None)
Quarter: 2010Q3

REPORT INFORMATION
  Report Type: 
  Country: None (occurrence: None)
  Receive Date: 20100813
  Receipt Date: 20100805
  Transmission Date: 20110219
  Serious: Yes (Life-Threatening, Hospitalization)
  Sender: FDA-Public Use
  Company Number: NL-SANOFI-AVENTIS-2010SA033153

PATIENT
  Sex: Female

DRUGS (3)
  1. FEXOFENADINE HCL [Suspect]
     Route: 048
     Dates: start: 20100430, end: 20100501
  2. LEVONORGESTREL AND ETHINYL ESTRADIOL [Concomitant]
     Dosage: 30/50 MCG
     Route: 048
     Dates: start: 20060619
  3. OXAZEPAM [Concomitant]
     Route: 048

REACTIONS (1)
  - VENTRICULAR FIBRILLATION [None]
